FAERS Safety Report 9255287 (Version 1)
Quarter: 2013Q2

REPORT INFORMATION
  Report Type: Spontaneous
  Country: US (occurrence: None)
  Receive Date: 20130418
  Receipt Date: 20130418
  Transmission Date: 20140414
  Serious: Yes (Death)
  Sender: FDA-Public Use
  Company Number: 2013-US-0143

PATIENT
  Age: 57 Year
  Sex: Male

DRUGS (1)
  1. ABSTRAL [Suspect]
     Indication: PAIN
     Dosage: EVERY 6 HOURS AS NEEDED SUBLINGUAL
     Route: 060

REACTIONS (2)
  - Colon cancer metastatic [None]
  - Malignant neoplasm progression [None]
